FAERS Safety Report 9970630 (Version 1)
Quarter: 2014Q1

REPORT INFORMATION
  Report Type: Spontaneous
  Country: US (occurrence: US)
  Receive Date: 20140306
  Receipt Date: 20140306
  Transmission Date: 20141002
  Serious: No
  Sender: FDA-Public Use
  Company Number: US-ABBVIE-13P-163-1149519-00

PATIENT
  Age: 29 Year
  Sex: Female
  Weight: 61.29 kg

DRUGS (3)
  1. HUMIRA [Suspect]
     Indication: CROHN^S DISEASE
     Dosage: LOADING DOSE
     Route: 058
     Dates: start: 20130906, end: 20130906
  2. HUMIRA [Suspect]
     Dates: start: 20130920, end: 20130920
  3. PENTASA [Concomitant]
     Indication: CROHN^S DISEASE

REACTIONS (3)
  - Injection site rash [Not Recovered/Not Resolved]
  - Injection site mass [Recovering/Resolving]
  - Injection site erythema [Recovering/Resolving]
